FAERS Safety Report 4633893-3 (Version None)
Quarter: 2005Q2

REPORT INFORMATION
  Report Type: 
  Country: None (occurrence: None)
  Receive Date: 20050413
  Receipt Date: 20031126
  Transmission Date: 20051028
  Serious: Yes (Death)
  Sender: FDA-Public Use
  Company Number: US-KINGPHARMUSA00001-K200301840

PATIENT
  Age: 60 Year
  Sex: Male

DRUGS (12)
  1. ALTACE [Suspect]
     Indication: PROPHYLAXIS
     Dosage: 10 MG, UNK
     Route: 048
     Dates: start: 20020812, end: 20030110
  2. AMIODARONE [Concomitant]
  3. METOPROLOL TARTRATE [Concomitant]
  4. RANITIDINE [Concomitant]
  5. GEMFIBROZIL [Concomitant]
  6. AMITRIPTYLINE HCL TAB [Concomitant]
  7. INSULIN [Concomitant]
  8. NEURONTIN [Concomitant]
  9. ASPIRIN [Concomitant]
  10. ROSIGLITAZONE [Concomitant]
  11. FUROSEMIDE [Suspect]
  12. METFORMIN HCL [Suspect]

REACTIONS (3)
  - BLOOD CREATININE INCREASED [None]
  - CARDIOGENIC SHOCK [None]
  - RENAL FAILURE ACUTE [None]
